FAERS Safety Report 16304774 (Version 1)
Quarter: 2019Q2

REPORT INFORMATION
  Report Type: Spontaneous
  Country: PK (occurrence: PK)
  Receive Date: 20190513
  Receipt Date: 20190513
  Transmission Date: 20190711
  Serious: Yes (Hospitalization, Other)
  Sender: FDA-Public Use
  Company Number: PK-009507513-1905PAK000863

PATIENT
  Age: 65 Year
  Sex: Male
  Weight: 75 kg

DRUGS (3)
  1. TIENAM [Suspect]
     Active Substance: CILASTATIN SODIUM\IMIPENEM
     Indication: PERITONITIS BACTERIAL
     Dosage: UNK
     Route: 042
     Dates: start: 20190426, end: 20190426
  2. MAXOLON [Concomitant]
     Active Substance: METOCLOPRAMIDE HYDROCHLORIDE
     Dosage: UNK
  3. FLAGYL I.V. [Concomitant]
     Dosage: 500 MILLIGRAM, TID
     Route: 042
     Dates: start: 20190425, end: 20190502

REACTIONS (4)
  - Liver disorder [Unknown]
  - Peritonitis bacterial [Recovered/Resolved]
  - Diabetes mellitus [Unknown]
  - Hypertension [Unknown]

NARRATIVE: CASE EVENT DATE: 201904
